FAERS Safety Report 8496577-X (Version None)
Quarter: 2012Q2

REPORT INFORMATION
  Report Type: 
  Country: None (occurrence: None)
  Receive Date: 20120629
  Receipt Date: 20120618
  Transmission Date: 20120825
  Serious: Yes (Hospitalization, Other)
  Sender: FDA-Public Use
  Company Number: CC-12-030 (CASE 2)

PATIENT
  Age: 71 Year
  Sex: Male

DRUGS (1)
  1. CLONIDINE [Suspect]
     Indication: BACK PAIN
     Dosage: 275 UG;QD;INTH
     Route: 037

REACTIONS (6)
  - SPEECH DISORDER [None]
  - DEVICE LEAKAGE [None]
  - WRONG TECHNIQUE IN DRUG USAGE PROCESS [None]
  - ACCIDENTAL OVERDOSE [None]
  - HYPERTENSION [None]
  - LOSS OF CONSCIOUSNESS [None]
